FAERS Safety Report 7931450-4 (Version None)
Quarter: 2011Q4

REPORT INFORMATION
  Report Type: 
  Country: None (occurrence: None)
  Receive Date: 20111121
  Receipt Date: 20111111
  Transmission Date: 20120403
  Serious: No
  Sender: FDA-Public Use
  Company Number: US-BAYER-2011-109925

PATIENT
  Age: 39 Year
  Sex: Female

DRUGS (1)
  1. MIRENA [Suspect]
     Indication: CONTRACEPTION
     Dosage: 20 ?G/D, CONT
     Route: 015
     Dates: start: 20111108, end: 20111108

REACTIONS (3)
  - DEVICE DIFFICULT TO USE [None]
  - UTERINE CERVIX STENOSIS [None]
  - PROCEDURAL PAIN [None]
